FAERS Safety Report 4860448-8 (Version None)
Quarter: 2005Q4

REPORT INFORMATION
  Report Type: 
  Country: None (occurrence: None)
  Receive Date: 20051215
  Receipt Date: 20051202
  Transmission Date: 20060501
  Serious: Yes (Other)
  Sender: FDA-Public Use
  Company Number: 2005164108

PATIENT
  Sex: Male

DRUGS (12)
  1. VIAGRA [Suspect]
     Indication: ERECTILE DYSFUNCTION
     Dosage: 100 MG (100 MG, AS NECESSARY); ORAL
     Route: 048
  2. XANAX [Suspect]
     Indication: INSOMNIA
     Dosage: ORAL
     Route: 048
  3. INSULIN HUMULIN 70/30 (INSULIN HUMAN, INSULIN HUMAN INJECTION, ISOPHAN [Concomitant]
  4. PLAVIX [Concomitant]
  5. LASIX [Concomitant]
  6. OMEPRAZOLE [Concomitant]
  7. GABAPENTIN [Concomitant]
  8. SIMVASTATIN [Concomitant]
  9. ATENOLOL [Concomitant]
  10. VITAMIN E [Concomitant]
  11. VITAMIN B-12 [Concomitant]
  12. LUNESTA [Concomitant]

REACTIONS (10)
  - CARDIAC DISORDER [None]
  - CARPAL TUNNEL DECOMPRESSION [None]
  - DIABETES MELLITUS NON-INSULIN-DEPENDENT [None]
  - DRUG INEFFECTIVE [None]
  - ERECTILE DYSFUNCTION [None]
  - HEADACHE [None]
  - INSOMNIA [None]
  - POST PROCEDURAL COMPLICATION [None]
  - SELF-MEDICATION [None]
  - WEIGHT FLUCTUATION [None]
